FAERS Safety Report 10220747 (Version 1)
Quarter: 2014Q2

REPORT INFORMATION
  Report Type: Spontaneous
  Country: US (occurrence: US)
  Receive Date: 20140606
  Receipt Date: 20140606
  Transmission Date: 20141212
  Serious: No
  Sender: FDA-Public Use
  Company Number: US-PFIZER INC-2014154253

PATIENT
  Age: 64 Year
  Sex: Female
  Weight: 77.1 kg

DRUGS (6)
  1. SUTENT [Suspect]
     Indication: RENAL CELL CARCINOMA STAGE IV
     Dosage: 50 MG, 1X/DAY
     Route: 048
     Dates: start: 20120329, end: 201204
  2. SUTENT [Suspect]
     Dosage: 37.5 MG (ONE CAPSULE OF 25MG AND ONE CAPSULE OF 12.5MG), 1X/DAY
     Route: 048
     Dates: start: 201204, end: 20131015
  3. ATENOLOL [Concomitant]
     Indication: HYPERTENSION
     Dosage: 25 MG, 1X/DAY (AT BEDTIME)
  4. LISINOPRIL [Concomitant]
     Indication: HYPERTENSION
     Dosage: 5 MG, 1X/DAY (IN THE MORNING)
  5. SYNTHROID [Concomitant]
     Indication: THYROID DISORDER
     Dosage: 100 UG, UNK
  6. OMEPRAZOLE [Concomitant]
     Dosage: 20 MG, UNK

REACTIONS (2)
  - Disease progression [Unknown]
  - Renal cell carcinoma stage IV [Unknown]
